FAERS Safety Report 13108969 (Version 1)
Quarter: 2017Q1

REPORT INFORMATION
  Report Type: Spontaneous
  Country: FR (occurrence: FR)
  Receive Date: 20170112
  Receipt Date: 20170112
  Transmission Date: 20170428
  Serious: Yes (Hospitalization)
  Sender: FDA-Public Use
  Company Number: FR-MYLANLABS-2017M1001425

PATIENT

DRUGS (23)
  1. TIORFAN [Suspect]
     Active Substance: RACECADOTRIL
     Indication: DIARRHOEA
     Dosage: 100 MG, QD
     Route: 048
     Dates: start: 20150126, end: 20150128
  2. PARACETAMOL [Concomitant]
     Active Substance: ACETAMINOPHEN
     Indication: PRODUCT USED FOR UNKNOWN INDICATION
     Dosage: UNK
     Dates: end: 20150120
  3. ASPEGIC [Concomitant]
     Active Substance: ASPIRIN DL-LYSINE
     Indication: STENT PLACEMENT
     Dosage: 250 UNK, UNK
     Dates: start: 20150121, end: 20150121
  4. RISORDAN                           /00110502/ [Concomitant]
     Active Substance: .ALPHA.-TOCOPHEROL ACETATE
     Indication: STENT PLACEMENT
     Dosage: 10 MG, ONCE
     Route: 042
     Dates: start: 20150121, end: 20150121
  5. LIDOCAINE. [Concomitant]
     Active Substance: LIDOCAINE
     Indication: STENT PLACEMENT
     Dosage: 40 UNK, UNK
     Route: 058
     Dates: start: 20150121, end: 20150121
  6. PERFALGAN [Concomitant]
     Active Substance: ACETAMINOPHEN
     Indication: STENT PLACEMENT
     Dosage: UNK
     Route: 042
     Dates: start: 20150121, end: 20150121
  7. PREDNISOLONE. [Concomitant]
     Active Substance: PREDNISOLONE
     Indication: PRODUCT USED FOR UNKNOWN INDICATION
     Dosage: UNK
     Dates: start: 20150114, end: 20150121
  8. BISOPROLOL [Concomitant]
     Active Substance: BISOPROLOL
     Indication: PRODUCT USED FOR UNKNOWN INDICATION
     Dosage: UNK
     Dates: end: 20150120
  9. BISOPROLOL [Concomitant]
     Active Substance: BISOPROLOL
     Dosage: UNK
     Dates: start: 20150126
  10. FONDAPARINUX [Suspect]
     Active Substance: FONDAPARINUX
     Indication: STENT PLACEMENT
     Dosage: 2.5 MG, QD
     Route: 058
     Dates: start: 20150121, end: 20150126
  11. VISIPAQUE [Suspect]
     Active Substance: IODIXANOL
     Indication: ARTERIOGRAM CORONARY
     Dosage: 150 MG, ONCE
     Route: 042
     Dates: start: 20150121, end: 20150121
  12. LOVENOX [Concomitant]
     Active Substance: ENOXAPARIN SODIUM
     Indication: STENT PLACEMENT
     Dosage: UNK
     Route: 058
  13. METALYSE [Concomitant]
     Active Substance: TENECTEPLASE
     Indication: STENT PLACEMENT
     Dosage: 1 DF, ONCE
     Route: 042
     Dates: start: 20150121, end: 20150121
  14. MORPHINE [Concomitant]
     Active Substance: MORPHINE
     Indication: STENT PLACEMENT
     Dosage: 5 MG, ONCE
     Route: 042
     Dates: start: 20150121, end: 20150121
  15. CLOPIDOGREL [Concomitant]
     Active Substance: CLOPIDOGREL BISULFATE
     Indication: PRODUCT USED FOR UNKNOWN INDICATION
     Dosage: UNK
  16. PANTOPRAZOLE [Concomitant]
     Active Substance: PANTOPRAZOLE SODIUM
     Dosage: UNK
     Dates: start: 20150123
  17. PLAVIX [Concomitant]
     Active Substance: CLOPIDOGREL BISULFATE
     Indication: STENT PLACEMENT
     Dosage: 600
     Dates: start: 20150121, end: 20150121
  18. ATORVASTATIN [Concomitant]
     Active Substance: ATORVASTATIN
     Indication: PRODUCT USED FOR UNKNOWN INDICATION
     Dosage: UNK
  19. POTASSIUM CHLORIDE. [Concomitant]
     Active Substance: POTASSIUM CHLORIDE
     Indication: PRODUCT USED FOR UNKNOWN INDICATION
     Dosage: UNK
  20. TIORFAN [Suspect]
     Active Substance: RACECADOTRIL
     Dosage: UNK
     Route: 048
     Dates: end: 20160120
  21. KARDEGIC [Concomitant]
     Active Substance: ASPIRIN LYSINE
     Indication: PRODUCT USED FOR UNKNOWN INDICATION
     Dosage: UNK
  22. PANTOPRAZOLE [Concomitant]
     Active Substance: PANTOPRAZOLE SODIUM
     Indication: PRODUCT USED FOR UNKNOWN INDICATION
     Dosage: UNK
     Dates: end: 20150120
  23. PARACETAMOL [Concomitant]
     Active Substance: ACETAMINOPHEN
     Dosage: UNK
     Dates: start: 20150126

REACTIONS (2)
  - Acute generalised exanthematous pustulosis [Recovered/Resolved]
  - Off label use [Recovered/Resolved]

NARRATIVE: CASE EVENT DATE: 20150121
